FAERS Safety Report 24435516 (Version 2)
Quarter: 2024Q4

REPORT INFORMATION
  Report Type: Spontaneous
  Country: US (occurrence: US)
  Receive Date: 20241015
  Receipt Date: 20241114
  Transmission Date: 20250115
  Serious: No
  Sender: MELINTA THERAPEUTICS
  Company Number: US-MELINTA THERAPEUTICS, LLC-US-MLNT-24-00477

PATIENT

DRUGS (3)
  1. TOPROL XL [Suspect]
     Active Substance: METOPROLOL SUCCINATE
     Indication: Product used for unknown indication
     Dosage: 12.5 MILLIGRAM
     Dates: start: 2021
  2. CRESTOR [Suspect]
     Active Substance: ROSUVASTATIN CALCIUM
     Indication: Product used for unknown indication
     Dosage: 5 MILLIGRAM
  3. CRESTOR [Suspect]
     Active Substance: ROSUVASTATIN CALCIUM
     Dosage: 10 MILLIGRAM

REACTIONS (1)
  - Dysphonia [Unknown]
